FAERS Safety Report 8101974-8 (Version None)
Quarter: 2012Q1

REPORT INFORMATION
  Report Type: 
  Country: None (occurrence: None)
  Receive Date: 20120131
  Receipt Date: 20120118
  Transmission Date: 20120608
  Serious: Yes (Hospitalization, Other)
  Sender: FDA-Public Use
  Company Number: CA-JNJFOC-20120113320

PATIENT
  Sex: Female
  Weight: 45.36 kg

DRUGS (3)
  1. REMICADE [Suspect]
  2. REMICADE [Suspect]
     Dates: start: 20110416
  3. REMICADE [Suspect]
     Indication: CROHN'S DISEASE
     Dates: start: 20120112

REACTIONS (2)
  - CHOLECYSTECTOMY [None]
  - INTESTINAL OBSTRUCTION [None]
